FAERS Safety Report 15622009 (Version 1)
Quarter: 2018Q4

REPORT INFORMATION
  Report Type: Spontaneous
  Country: US (occurrence: US)
  Receive Date: 20181109
  Receipt Date: 20181109
  Transmission Date: 20190205
  Serious: No
  Sender: FDA-Public Use
  Company Number: None

PATIENT
  Age: 47 Year
  Sex: Male

DRUGS (1)
  1. COSENTYX [Suspect]
     Active Substance: SECUKINUMAB
     Indication: PSORIASIS
     Dosage: ?          OTHER FREQUENCY:ONCE EVERY 4 WEEKS;?
     Route: 058
     Dates: start: 2018, end: 2018

REACTIONS (3)
  - Diarrhoea [None]
  - Irritable bowel syndrome [None]
  - Urticaria [None]

NARRATIVE: CASE EVENT DATE: 201810
